FAERS Safety Report 17352071 (Version 1)
Quarter: 2020Q1

REPORT INFORMATION
  Report Type: Spontaneous
  Country: AE (occurrence: AE)
  Receive Date: 20200130
  Receipt Date: 20200130
  Transmission Date: 20200409
  Serious: Yes (Other)
  Sender: FDA-Public Use
  Company Number: AE-BAYER-2020-016222

PATIENT
  Sex: Male

DRUGS (1)
  1. CLARITINE 10 MG [Suspect]
     Active Substance: LORATADINE
     Dosage: ONE DOSE EVERY 6 DAYS

REACTIONS (1)
  - Drug dependence [None]
